FAERS Safety Report 23921544 (Version 1)
Quarter: 2024Q2

REPORT INFORMATION
  Report Type: Spontaneous
  Country: US (occurrence: US)
  Receive Date: 20240530
  Receipt Date: 20240530
  Transmission Date: 20240716
  Serious: No
  Sender: FDA-Public Use
  Company Number: US-009507513-2405USA008208

PATIENT
  Age: 33 Year
  Sex: Female
  Weight: 54 kg

DRUGS (1)
  1. TEMODAR [Suspect]
     Active Substance: TEMOZOLOMIDE
     Indication: Brain stem glioma
     Route: 048

REACTIONS (1)
  - Product use in unapproved indication [Unknown]
